FAERS Safety Report 16614368 (Version 1)
Quarter: 2019Q3

REPORT INFORMATION
  Report Type: Spontaneous
  Country: FR (occurrence: FR)
  Receive Date: 20190723
  Receipt Date: 20190723
  Transmission Date: 20191004
  Serious: Yes (Disabling)
  Sender: FDA-Public Use
  Company Number: FR-ZYDUS-038905

PATIENT
  Age: 46 Year
  Sex: Male

DRUGS (5)
  1. VERATRAN [Suspect]
     Active Substance: CLOTIAZEPAM
     Indication: DEPRESSION
     Dosage: 10 MG, SCORED TABLET
     Route: 048
     Dates: start: 2009
  2. KEPPRA [Suspect]
     Active Substance: LEVETIRACETAM
     Indication: EPILEPSY
     Route: 048
     Dates: start: 2013
  3. PAROXETINE. [Suspect]
     Active Substance: PAROXETINE
     Indication: DEPRESSION
     Route: 048
     Dates: start: 2012
  4. IMUREL [Suspect]
     Active Substance: AZATHIOPRINE SODIUM
     Indication: CROHN^S DISEASE
     Dosage: 50 MG FILM-COATED TABLETS
     Route: 048
     Dates: start: 1998
  5. LOPERAMIDE [Suspect]
     Active Substance: LOPERAMIDE
     Indication: DIARRHOEA
     Route: 048
     Dates: start: 2002

REACTIONS (1)
  - Hyperhidrosis [Not Recovered/Not Resolved]

NARRATIVE: CASE EVENT DATE: 201706
